FAERS Safety Report 5694549-1 (Version None)
Quarter: 2008Q2

REPORT INFORMATION
  Report Type: 
  Country: None (occurrence: None)
  Receive Date: 20080404
  Receipt Date: 20080328
  Transmission Date: 20081010
  Serious: Yes (Hospitalization, Other)
  Sender: FDA-Public Use
  Company Number: US-AVENTIS-200811971US

PATIENT
  Age: 55 Year
  Sex: Male

DRUGS (5)
  1. LANTUS [Suspect]
     Route: 058
  2. GLIPIZIDE [Concomitant]
     Dosage: DOSE: UNK
  3. ZEGERID [Concomitant]
     Dosage: DOSE: UNK
  4. LASIX [Concomitant]
     Dosage: DOSE: UNK
  5. SPIRONOLACTONE [Concomitant]
     Dosage: DOSE: UNK

REACTIONS (1)
  - HEPATIC FAILURE [None]
